FAERS Safety Report 6956290-4 (Version None)
Quarter: 2010Q3

REPORT INFORMATION
  Report Type: 
  Country: None (occurrence: None)
  Receive Date: 20100830
  Receipt Date: 20100824
  Transmission Date: 20110219
  Serious: Yes (Hospitalization)
  Sender: FDA-Public Use
  Company Number: A0786269A

PATIENT
  Age: 46 Year
  Sex: Male
  Weight: 125 kg

DRUGS (6)
  1. AVANDIA [Suspect]
     Indication: DIABETES MELLITUS
     Dosage: 8MG TWICE PER DAY
     Route: 048
     Dates: start: 20011001, end: 20030101
  2. ASPIRIN [Concomitant]
  3. LANTUS [Concomitant]
  4. HUMALOG [Concomitant]
  5. GLUCOPHAGE [Concomitant]
  6. PREVACID [Concomitant]

REACTIONS (1)
  - CEREBROVASCULAR ACCIDENT [None]
